FAERS Safety Report 13942061 (Version 1)
Quarter: 2017Q3

REPORT INFORMATION
  Report Type: Spontaneous
  Country: US (occurrence: US)
  Receive Date: 20170907
  Receipt Date: 20170907
  Transmission Date: 20171127
  Serious: No
  Sender: FDA-Public Use
  Company Number: US-LUNDBECK-DKLU2028847

PATIENT
  Sex: Female

DRUGS (1)
  1. NORTHERA [Suspect]
     Active Substance: DROXIDOPA
     Indication: PRODUCT USED FOR UNKNOWN INDICATION
     Route: 065

REACTIONS (11)
  - Nausea [Unknown]
  - Nasopharyngitis [Unknown]
  - Dizziness [Unknown]
  - Memory impairment [Unknown]
  - Confusional state [Unknown]
  - Cough [Unknown]
  - Abdominal pain [Unknown]
  - Depression [Unknown]
  - Chest pain [Unknown]
  - Palpitations [Unknown]
  - Hypotension [Unknown]
